FAERS Safety Report 8979484 (Version 1)
Quarter: 2012Q4

REPORT INFORMATION
  Report Type: 
  Country: US (occurrence: US)
  Receive Date: 20121221
  Receipt Date: 20121221
  Transmission Date: 20130627
  Serious: No
  Sender: FDA-Public Use
  Company Number: US-009507513-1212USA008014

PATIENT
  Age: 66 Year
  Sex: Female
  Weight: 81.63 kg

DRUGS (4)
  1. VICTRELIS [Suspect]
     Dosage: 800 mg (4 capsules of 200 MG each by mouth three times a day every 7-9 hours with food), tid
     Route: 048
  2. RIBAVIRIN [Suspect]
  3. PEGASYS [Suspect]
     Dosage: 180 micrograms/M
  4. NEUPOGEN [Concomitant]

REACTIONS (4)
  - White blood cell count decreased [Unknown]
  - Dry skin [Unknown]
  - Rash [Unknown]
  - Pollakiuria [Unknown]
